FAERS Safety Report 4778067-0 (Version None)
Quarter: 2005Q3

REPORT INFORMATION
  Report Type: 
  Country: None (occurrence: None)
  Receive Date: 20050923
  Receipt Date: 20050923
  Transmission Date: 20060218
  Serious: Yes (Hospitalization, Other)
  Sender: FDA-Public Use
  Company Number: None

PATIENT
  Sex: Female
  Weight: 20.2 kg

DRUGS (3)
  1. CYTOXAN [Suspect]
     Dosage: SEE IMAGE
     Dates: start: 20050701
  2. PREDNISONE [Suspect]
     Dosage: SEE IMAGE
     Dates: start: 20050701
  3. RITUXIMAB [Suspect]
     Dosage: SEE IMAGE
     Dates: start: 20050701

REACTIONS (3)
  - BRADYCARDIA [None]
  - ELECTROCARDIOGRAM QT PROLONGED [None]
  - INFUSION RELATED REACTION [None]
